FAERS Safety Report 6106335-9 (Version None)
Quarter: 2009Q1

REPORT INFORMATION
  Report Type: 
  Country: None (occurrence: None)
  Receive Date: 20090306
  Receipt Date: 20090303
  Transmission Date: 20090719
  Serious: Yes (Death, Hospitalization, Other)
  Sender: FDA-Public Use
  Company Number: PHHY2009JP04244

PATIENT
  Sex: Male

DRUGS (19)
  1. STI571/CGP57148B T35717+TAB [Suspect]
     Indication: ACUTE LYMPHOCYTIC LEUKAEMIA
     Dosage: 600 MG DAILY
     Route: 048
     Dates: start: 20080912, end: 20080925
  2. STI571/CGP57148B T35717+TAB [Suspect]
     Dosage: 200 MG DAILY
     Route: 048
     Dates: start: 20081008, end: 20081021
  3. STI571/CGP57148B T35717+TAB [Suspect]
     Dosage: 300 MG DAILY
     Route: 048
     Dates: start: 20081025, end: 20081031
  4. METHOTREXATE [Suspect]
     Dosage: 15 MG DAILY, IS
     Dates: start: 20081003, end: 20081003
  5. METHOTREXATE [Suspect]
     Dosage: 15 MG DAILY, IS
     Dates: start: 20081022, end: 20081022
  6. METHOTREXATE [Suspect]
     Dosage: 1600 MG DAILY
     Route: 042
     Dates: start: 20081022, end: 20081022
  7. CYLOCIDE [Suspect]
     Dosage: 40 MG DAILY, IS
     Dates: start: 20081003, end: 20081003
  8. CYLOCIDE [Suspect]
     Dosage: 3200 MG DAILY
     Route: 042
  9. SOL MEDROL [Suspect]
     Dosage: 100 MG
     Route: 042
     Dates: start: 20081022, end: 20081024
  10. ONCOVIN [Suspect]
     Dosage: 2 MG
     Route: 042
     Dates: start: 20080905, end: 20080919
  11. ENDOXAN [Concomitant]
     Dosage: 1200 MG
     Route: 042
     Dates: start: 20080905, end: 20080905
  12. DAUNOMYCIN [Concomitant]
     Dosage: 50 MG
     Route: 042
     Dates: start: 20080905, end: 20080907
  13. PREDONINE [Concomitant]
     Dosage: 90 MG
     Route: 048
     Dates: start: 20080905, end: 20080918
  14. PREDONINE [Concomitant]
     Dosage: 30 MG
     Route: 048
     Dates: start: 20080905, end: 20080918
  15. DECADRON [Concomitant]
     Dosage: 4 MG, IS
     Dates: start: 20081003, end: 20081022
  16. DECADRON [Concomitant]
     Route: 065
  17. FAMOTIDINE [Concomitant]
     Dosage: 40 MG
     Route: 048
     Dates: start: 20080905, end: 20081013
  18. TAKEPRON [Concomitant]
     Dosage: 15 MG
     Route: 048
     Dates: start: 20081014, end: 20081101
  19. DIFLUCAN [Concomitant]
     Dosage: 200 MG
     Route: 048
     Dates: start: 20080905, end: 20080918

REACTIONS (26)
  - BASOPHIL COUNT DECREASED [None]
  - CARDIAC ARREST [None]
  - DISEASE PROGRESSION [None]
  - DYSPHAGIA [None]
  - FEBRILE NEUTROPENIA [None]
  - HAEMATOCRIT DECREASED [None]
  - HAEMOGLOBIN DECREASED [None]
  - HEPATIC FAILURE [None]
  - HYPOAESTHESIA [None]
  - ILEUS PARALYTIC [None]
  - JAUNDICE [None]
  - LIVER DISORDER [None]
  - MUCOUS MEMBRANE DISORDER [None]
  - MULTI-ORGAN FAILURE [None]
  - MUSCULAR WEAKNESS [None]
  - NEUTROPHIL COUNT DECREASED [None]
  - PAIN [None]
  - PAIN IN EXTREMITY [None]
  - PLATELET COUNT DECREASED [None]
  - PNEUMONIA [None]
  - RASH [None]
  - RED BLOOD CELL COUNT DECREASED [None]
  - RENAL DISORDER [None]
  - RESPIRATORY ARREST [None]
  - STAPHYLOCOCCAL SEPSIS [None]
  - STOMATITIS [None]
